FAERS Safety Report 17726439 (Version 1)
Quarter: 2020Q2

REPORT INFORMATION
  Report Type: Spontaneous
  Country: US (occurrence: US)
  Receive Date: 20200430
  Receipt Date: 20200430
  Transmission Date: 20200714
  Serious: No
  Sender: FDA-Public Use
  Company Number: US-GLAXOSMITHKLINE-US2020068626

PATIENT
  Age: 49 Year
  Sex: Female

DRUGS (1)
  1. ABREVA [Suspect]
     Active Substance: DOCOSANOL
     Indication: ORAL HERPES
     Dosage: UNK (USED IT FOR A WEEK OR SO)
     Dates: start: 20200305

REACTIONS (10)
  - Erythema [Unknown]
  - Drug ineffective [Unknown]
  - Application site induration [Unknown]
  - Condition aggravated [Unknown]
  - Application site discolouration [Unknown]
  - Scar [Not Recovered/Not Resolved]
  - Product administered at inappropriate site [Unknown]
  - Oral herpes [Unknown]
  - Burning sensation [Unknown]
  - Off label use [Unknown]
